FAERS Safety Report 24243063 (Version 1)
Quarter: 2024Q3

REPORT INFORMATION
  Report Type: Spontaneous
  Country: PL (occurrence: PL)
  Receive Date: 20240823
  Receipt Date: 20240823
  Transmission Date: 20241016
  Serious: Yes (Other)
  Sender: BLUEPRINT MEDICINES
  Company Number: PL-Blueprint Medicines Corporation-SP-PL-2024-001643

PATIENT
  Age: 67 Year
  Sex: Male

DRUGS (1)
  1. AVAPRITINIB [Suspect]
     Active Substance: AVAPRITINIB
     Indication: Gastrointestinal stromal tumour
     Route: 048
     Dates: start: 20231128

REACTIONS (5)
  - Anaemia [Recovered/Resolved]
  - Memory impairment [Recovered/Resolved]
  - Hypertension [Recovered/Resolved]
  - Oedema peripheral [Unknown]
  - Pleural effusion [Unknown]

NARRATIVE: CASE EVENT DATE: 20240403
